APPROVED DRUG PRODUCT: ACARBOSE
Active Ingredient: ACARBOSE
Strength: 100MG
Dosage Form/Route: TABLET;ORAL
Application: A078441 | Product #003 | TE Code: AB
Applicant: IMPAX LABORATORIES INC
Approved: May 14, 2009 | RLD: No | RS: No | Type: RX